FAERS Safety Report 9444463 (Version 1)
Quarter: 2013Q3

REPORT INFORMATION
  Report Type: Spontaneous
  Country: US (occurrence: None)
  Receive Date: 20130805
  Receipt Date: 20130805
  Transmission Date: 20140515
  Serious: Yes (Other)
  Sender: FDA-Public Use
  Company Number: ADR-2013-01293

PATIENT
  Age: 22 Year
  Sex: Male

DRUGS (1)
  1. BACLOFEN [Suspect]
     Indication: MUSCLE SPASTICITY
     Dosage: 944MCG/DAY

REACTIONS (4)
  - Urinary tract infection [None]
  - Ascites [None]
  - Gastrointestinal disorder [None]
  - Pain [None]
